FAERS Safety Report 17500025 (Version 1)
Quarter: 2020Q1

REPORT INFORMATION
  Report Type: Spontaneous
  Country: US (occurrence: US)
  Receive Date: 20200305
  Receipt Date: 20200305
  Transmission Date: 20200409
  Serious: Yes (Death)
  Sender: FDA-Public Use
  Company Number: US-ROCHE-2562105

PATIENT
  Sex: Female

DRUGS (4)
  1. GABAPENTIN. [Concomitant]
     Active Substance: GABAPENTIN
  2. METHOTREXATE. [Concomitant]
     Active Substance: METHOTREXATE
  3. PRILOSEC [Concomitant]
     Active Substance: OMEPRAZOLE MAGNESIUM
  4. RITUXAN [Suspect]
     Active Substance: RITUXIMAB
     Indication: IDIOPATHIC PULMONARY FIBROSIS
     Dosage: INFUSE 1000 MG IV ON D 0 + D14 EVERY 6 MONTHS?FORM OF ADMIN. TEXT: 500 MG 50ML SDV INJECTION
     Route: 042

REACTIONS (1)
  - Death [Fatal]
